FAERS Safety Report 4772718-2 (Version None)
Quarter: 2005Q3

REPORT INFORMATION
  Report Type: 
  Country: None (occurrence: None)
  Receive Date: 20050919
  Receipt Date: 20050901
  Transmission Date: 20060218
  Serious: Yes (Disabling)
  Sender: FDA-Public Use
  Company Number: 2005CG01466

PATIENT
  Age: 738 Month
  Sex: Male

DRUGS (1)
  1. CRESTOR [Suspect]
     Indication: HYPERCHOLESTEROLAEMIA
     Route: 048
     Dates: start: 20030615, end: 20050831

REACTIONS (3)
  - NODULE [None]
  - TENDON RUPTURE [None]
  - TENDONITIS [None]
